FAERS Safety Report 4305627-3 (Version None)
Quarter: 2004Q1

REPORT INFORMATION
  Report Type: 
  Country: None (occurrence: None)
  Receive Date: 20040226
  Receipt Date: 20031217
  Transmission Date: 20041129
  Serious: No
  Sender: FDA-Public Use
  Company Number: US-BRISTOL-MYERS SQUIBB COMPANY-12460259

PATIENT
  Age: 34 Year
  Sex: Female
  Weight: 63 kg

DRUGS (1)
  1. ABILIFY [Suspect]
     Indication: ANXIETY
     Route: 048
     Dates: start: 20031216

REACTIONS (2)
  - MEDICATION ERROR [None]
  - VOMITING [None]
